FAERS Safety Report 9725312 (Version 1)
Quarter: 2013Q4

REPORT INFORMATION
  Report Type: Spontaneous
  Country: US (occurrence: None)
  Receive Date: 20131202
  Receipt Date: 20131202
  Transmission Date: 20140711
  Serious: No
  Sender: FDA-Public Use
  Company Number: None

PATIENT
  Age: 36 Year
  Sex: Female

DRUGS (1)
  1. MONISTAT 7 [Suspect]
     Indication: FUNGAL INFECTION
     Dosage: 1 APPLICATORFUL ONCE DAILY VAGINAL
     Route: 067
     Dates: start: 20131124, end: 20131126

REACTIONS (2)
  - Abdominal pain [None]
  - Haemorrhage [None]
